FAERS Safety Report 16844095 (Version 1)
Quarter: 2019Q3

REPORT INFORMATION
  Report Type: Spontaneous
  Country: US (occurrence: US)
  Receive Date: 20190924
  Receipt Date: 20190924
  Transmission Date: 20191005
  Serious: Yes (Other)
  Sender: FDA-Public Use
  Company Number: US-PFIZER INC-2019120971

PATIENT
  Age: 62 Year
  Sex: Male
  Weight: 84.81 kg

DRUGS (3)
  1. RAPAMUNE [Suspect]
     Active Substance: SIROLIMUS
     Indication: LIVER TRANSPLANT
     Dosage: UNK ( FOR OVER 10 YEARS)
     Dates: start: 20190318
  2. RAPAMUNE [Suspect]
     Active Substance: SIROLIMUS
     Dosage: 1.5 MG, 2X/DAY (0.5MG 3 TABLETS BY MOUTH, TWICE A DAY)
     Route: 048
  3. RAPAMUNE [Suspect]
     Active Substance: SIROLIMUS
     Dosage: 3 MG, DAILY (THREE 1MG TABLETS BY MOUTH DAILY)
     Route: 048
     Dates: start: 20190318

REACTIONS (9)
  - Renal impairment [Unknown]
  - Arthropathy [Recovering/Resolving]
  - Pericardial effusion [Recovering/Resolving]
  - Off label use [Unknown]
  - Product use in unapproved indication [Unknown]
  - Ear infection [Unknown]
  - Spinal stenosis [Unknown]
  - Limb discomfort [Unknown]
  - Breath odour [Recovering/Resolving]

NARRATIVE: CASE EVENT DATE: 20190318
